FAERS Safety Report 18640047 (Version 1)
Quarter: 2020Q4

REPORT INFORMATION
  Report Type: Spontaneous
  Country: US (occurrence: US)
  Receive Date: 20201220
  Receipt Date: 20201220
  Transmission Date: 20210114
  Serious: Yes (Hospitalization)
  Sender: FDA-Public Use
  Company Number: US-PACIRA-202000443

PATIENT

DRUGS (1)
  1. EXPAREL [Suspect]
     Active Substance: BUPIVACAINE
     Indication: MAMMOPLASTY
     Dosage: NOT PROVIDED; EXPAREL ADMINISTERED AGAIN SAME DAY AFTER INITIAL PROCEDURE
     Route: 065

REACTIONS (3)
  - Off label use [Unknown]
  - Inappropriate schedule of product administration [Unknown]
  - Post procedural haematoma [Unknown]

NARRATIVE: CASE EVENT DATE: 20201005
